FAERS Safety Report 24388893 (Version 1)
Quarter: 2024Q4

REPORT INFORMATION
  Report Type: Spontaneous
  Country: US (occurrence: US)
  Receive Date: 20241002
  Receipt Date: 20241002
  Transmission Date: 20250114
  Serious: No
  Sender: ALKERMES
  Company Number: US-ALKERMES INC.-ALK-2024-002537

PATIENT
  Age: 22 Year
  Sex: Male
  Weight: 88.889 kg

DRUGS (2)
  1. ARISTADA [Suspect]
     Active Substance: ARIPIPRAZOLE LAUROXIL
     Indication: Psychotic disorder
     Dosage: 441 MILLIGRAM, QMO
     Route: 030
  2. WELLBUTRIN [Concomitant]
     Active Substance: BUPROPION HYDROCHLORIDE
     Indication: Product used for unknown indication
     Dosage: UNK
     Route: 065

REACTIONS (6)
  - Needle issue [Recovered/Resolved]
  - Product temperature excursion issue [Recovered/Resolved]
  - Product physical consistency issue [Recovered/Resolved]
  - Wrong technique in device usage process [Recovered/Resolved]
  - Off label use [Unknown]
  - Weight increased [Unknown]

NARRATIVE: CASE EVENT DATE: 20240930
